FAERS Safety Report 6593333-4 (Version None)
Quarter: 2010Q1

REPORT INFORMATION
  Report Type: 
  Country: None (occurrence: None)
  Receive Date: 20100222
  Receipt Date: 20090203
  Transmission Date: 20100710
  Serious: No
  Sender: FDA-Public Use
  Company Number: US-BRISTOL-MYERS SQUIBB COMPANY-14492433

PATIENT
  Age: 62 Year
  Sex: Female
  Weight: 63 kg

DRUGS (7)
  1. ORENCIA [Suspect]
     Indication: RHEUMATOID ARTHRITIS
     Dosage: NUMBER OF INFUSION=7,LAST INFUSION ON 13JAN09.
  2. TEGRETOL [Concomitant]
  3. PREDNISONE [Concomitant]
  4. METHOTREXATE [Concomitant]
  5. NEXIUM [Concomitant]
  6. OMEGA 3 FATTY ACID [Concomitant]
  7. OS-CAL [Concomitant]

REACTIONS (3)
  - COUGH [None]
  - HERPES VIRUS INFECTION [None]
  - OROPHARYNGEAL PAIN [None]
